FAERS Safety Report 19465975 (Version 3)
Quarter: 2021Q4

REPORT INFORMATION
  Report Type: Spontaneous
  Country: US (occurrence: US)
  Receive Date: 20210626
  Receipt Date: 20211118
  Transmission Date: 20220303
  Serious: No
  Sender: FDA-Public Use
  Company Number: US-CELGENE-USA-20210605593

PATIENT
  Sex: Male
  Weight: 73.548 kg

DRUGS (2)
  1. REVLIMID [Suspect]
     Active Substance: LENALIDOMIDE
     Indication: Plasma cell myeloma
     Dosage: 15 MILLIGRAM
     Route: 048
     Dates: start: 201712
  2. REVLIMID [Suspect]
     Active Substance: LENALIDOMIDE
     Dosage: 10 MILLIGRAM
     Route: 048
     Dates: start: 20200528

REACTIONS (2)
  - Asthenia [Not Recovered/Not Resolved]
  - Arthralgia [Not Recovered/Not Resolved]
